FAERS Safety Report 24263256 (Version 1)
Quarter: 2024Q3

REPORT INFORMATION
  Report Type: Spontaneous
  Country: JP (occurrence: JP)
  Receive Date: 20240829
  Receipt Date: 20240829
  Transmission Date: 20241017
  Serious: Yes (Hospitalization)
  Sender: ELI LILLY AND CO
  Company Number: JP-ELI_LILLY_AND_COMPANY-JP202408012712

PATIENT
  Age: 75 Year
  Sex: Male

DRUGS (5)
  1. OMVOH [Suspect]
     Active Substance: MIRIKIZUMAB-MRKZ
     Indication: Colitis ulcerative
     Dosage: UNK
     Route: 042
     Dates: start: 202305
  2. LIALDA [Concomitant]
     Active Substance: MESALAMINE
     Dosage: UNK
     Dates: start: 202305
  3. PREDNISOLONE SODIUM PHOSPHATE [Concomitant]
     Active Substance: PREDNISOLONE SODIUM PHOSPHATE
     Indication: Colitis ulcerative
     Dosage: UNK
     Dates: start: 202305
  4. INFLIXIMAB [Concomitant]
     Active Substance: INFLIXIMAB
     Dosage: UNK
     Dates: start: 202404
  5. VEDOLIZUMAB [Concomitant]
     Active Substance: VEDOLIZUMAB
     Dosage: UNK
     Dates: start: 202405

REACTIONS (1)
  - Colitis ulcerative [Unknown]

NARRATIVE: CASE EVENT DATE: 20240301
